FAERS Safety Report 14690434 (Version 1)
Quarter: 2018Q1

REPORT INFORMATION
  Report Type: Report from Study
  Country: None (occurrence: PL)
  Receive Date: 20180328
  Receipt Date: 20180328
  Transmission Date: 20180509
  Serious: Yes (Hospitalization)
  Sender: FDA-Public Use
  Company Number: PL-ABBVIE-17P-129-2087406-00

PATIENT
  Age: 73 Year
  Sex: Male
  Weight: 95 kg

DRUGS (9)
  1. XIMVE [Concomitant]
     Indication: HYPERCHOLESTEROLAEMIA
     Route: 048
     Dates: start: 20170313, end: 20170829
  2. MILURIT [Concomitant]
     Active Substance: ALLOPURINOL
     Indication: HYPERURICAEMIA
     Route: 048
     Dates: start: 20170313, end: 20170829
  3. ADALIMUMAB [Suspect]
     Active Substance: ADALIMUMAB
     Indication: PSORIASIS
     Route: 058
     Dates: start: 20160629, end: 20160629
  4. TAMSUGEN [Concomitant]
     Indication: PROPHYLAXIS
     Route: 048
     Dates: start: 20170123
  5. ACARD [Concomitant]
     Active Substance: ASPIRIN
     Indication: ISCHAEMIC HEART DISEASE PROPHYLAXIS
     Route: 048
     Dates: start: 20170707
  6. HYPLAFIN [Concomitant]
     Indication: PROPHYLAXIS
     Route: 048
     Dates: start: 20170123
  7. ADALIMUMAB [Suspect]
     Active Substance: ADALIMUMAB
     Route: 058
     Dates: start: 20160706, end: 20170607
  8. TAMSUGEN [Concomitant]
     Indication: URINARY TRACT DISORDER
  9. HYPLAFIN [Concomitant]
     Indication: URINARY TRACT DISORDER

REACTIONS (1)
  - Dementia Alzheimer^s type [Not Recovered/Not Resolved]

NARRATIVE: CASE EVENT DATE: 201704
